FAERS Safety Report 5409424-7 (Version None)
Quarter: 2007Q3

REPORT INFORMATION
  Report Type: 
  Country: None (occurrence: None)
  Receive Date: 20070807
  Receipt Date: 20070725
  Transmission Date: 20080115
  Serious: Yes (Hospitalization)
  Sender: FDA-Public Use
  Company Number: GXKR2007AT06393

PATIENT
  Age: 62 Year
  Sex: Male

DRUGS (4)
  1. ASPIRIN [Suspect]
     Indication: MYOCARDIAL INFARCTION
     Dosage: 100 MG DAILY
  2. CLOPIDOGREL [Suspect]
     Indication: MYOCARDIAL INFARCTION
     Dosage: 300 MG, LOADING DOSE, ORAL; 75 MG DAILY
     Route: 048
  3. ENOXAPARIN SODIUM [Suspect]
     Indication: MYOCARDIAL INFARCTION
     Dosage: 1 MG/KG, BID
  4. TIROFIBAN(TIROFIBAN) [Suspect]
     Indication: MYOCARDIAL INFARCTION
     Dosage: 0.4 UG/KG/MIN, BOLUS; 0.1 UG/KG/MIN, INFUSION
     Route: 040

REACTIONS (2)
  - CHEST PAIN [None]
  - THROMBOCYTOPENIA [None]
